FAERS Safety Report 24406095 (Version 1)
Quarter: 2024Q4

REPORT INFORMATION
  Report Type: Report from Study
  Country: US (occurrence: US)
  Receive Date: 20241007
  Receipt Date: 20241007
  Transmission Date: 20250115
  Serious: Yes (Death, Other)
  Sender: MERZ
  Company Number: US-MERZ PHARMACEUTICALS, LLC-ACO_178051_2024

PATIENT
  Sex: Male

DRUGS (3)
  1. INBRIJA [Suspect]
     Active Substance: LEVODOPA
     Indication: Parkinson^s disease
     Dosage: 2 DOSAGE FORM (84 MILLIGRAM), PRN (UP TO 5 TIMES PER DAY)
     Dates: start: 20211021
  2. PROBIOTICS NOS [Concomitant]
     Active Substance: PROBIOTICS NOS
     Indication: Product used for unknown indication
     Dosage: 4X
     Route: 065
  3. CALTRATE +D [CALCIUM;COLECALCIFEROL] [Concomitant]
     Indication: Product used for unknown indication
     Dosage: 600-800
     Route: 065

REACTIONS (1)
  - Death [Fatal]
